FAERS Safety Report 11586784 (Version 2)
Quarter: 2016Q2

REPORT INFORMATION
  Report Type: Spontaneous
  Country: US (occurrence: US)
  Receive Date: 20151001
  Receipt Date: 20160606
  Transmission Date: 20160815
  Serious: No
  Sender: FDA-Public Use
  Company Number: US-PFIZER INC-2015326128

PATIENT
  Age: 72 Year
  Sex: Female

DRUGS (2)
  1. LYRICA [Suspect]
     Active Substance: PREGABALIN
     Dosage: 150 MG, UNK
  2. LYRICA [Suspect]
     Active Substance: PREGABALIN
     Indication: GOUTY ARTHRITIS
     Dosage: 200 MG, DAILY (100 MG, 2 CAPSULES AT BEDTIME)
     Route: 048
     Dates: start: 20160502

REACTIONS (2)
  - Product use issue [Unknown]
  - Malaise [Unknown]
